FAERS Safety Report 5318370-9 (Version None)
Quarter: 2007Q1

REPORT INFORMATION
  Report Type: 
  Country: None (occurrence: None)
  Receive Date: 20070130
  Receipt Date: 20061006
  Transmission Date: 20070707
  Serious: No
  Sender: FDA-Public Use
  Company Number: 200618381US

PATIENT
  Age: 38 Year
  Sex: Female

DRUGS (4)
  1. KETEK [Suspect]
     Indication: BRONCHITIS
     Dosage: 400 MG
     Dates: start: 20060915, end: 20060918
  2. BUSPAR [Concomitant]
  3. PAXIL [Concomitant]
  4. CEPHALEXIN [Concomitant]

REACTIONS (2)
  - PARAESTHESIA ORAL [None]
  - SWOLLEN TONGUE [None]
